FAERS Safety Report 22160972 (Version 1)
Quarter: 2023Q1

REPORT INFORMATION
  Report Type: Spontaneous
  Country: US (occurrence: None)
  Receive Date: 20230330
  Receipt Date: 20230330
  Transmission Date: 20230417
  Serious: No
  Sender: FDA-Public Use
  Company Number: None

PATIENT
  Age: 71 Year
  Sex: Female
  Weight: 71.67 kg

DRUGS (1)
  1. RINVOQ [Suspect]
     Active Substance: UPADACITINIB
     Indication: Rheumatoid arthritis
     Dosage: FREQUENCY : DAILY;?
     Route: 048
     Dates: start: 202007

REACTIONS (6)
  - Malaise [None]
  - Drug effect less than expected [None]
  - Deep vein thrombosis [None]
  - Oral pain [None]
  - Oral mucosal erythema [None]
  - Oral mucosal discolouration [None]
